FAERS Safety Report 16938347 (Version 1)
Quarter: 2019Q4

REPORT INFORMATION
  Report Type: Spontaneous
  Country: US (occurrence: US)
  Receive Date: 20191019
  Receipt Date: 20191019
  Transmission Date: 20200122
  Serious: Yes (Life-Threatening)
  Sender: FDA-Public Use
  Company Number: NVSC2019US005808

PATIENT
  Sex: Female
  Weight: 53.97 kg

DRUGS (1)
  1. ENTRESTO [Suspect]
     Active Substance: SACUBITRIL\VALSARTAN
     Indication: CARDIAC FAILURE CONGESTIVE
     Route: 065

REACTIONS (5)
  - Post-traumatic stress disorder [Unknown]
  - Gait disturbance [Unknown]
  - Fatigue [Unknown]
  - Near death experience [Unknown]
  - Depression [Unknown]
